FAERS Safety Report 8951323 (Version 3)
Quarter: 2013Q1

REPORT INFORMATION
  Report Type: Spontaneous
  Country: US (occurrence: None)
  Receive Date: 20121129
  Receipt Date: 20130131
  Transmission Date: 20140127
  Serious: Yes (Other)
  Sender: FDA-Public Use
  Company Number: JPI-P-026397

PATIENT
  Age: 34 Year
  Sex: Female
  Weight: 56.7 kg

DRUGS (7)
  1. XYREM (500 MILLIGRAM/MILLILITERS, SOLUTION) (SODIUM OXYBATE) [Suspect]
     Indication: CATAPLEXY
     Dosage: 4.5 GM (2.25 GM, 2 IN 1 D)
     Route: 048
     Dates: start: 20090710
  2. XYREM (500 MILLIGRAM/MILLILITERS, SOLUTION) (SODIUM OXYBATE) [Suspect]
     Indication: SOMNOLENCE
     Dosage: 4.5 GM (2.25 GM, 2 IN 1 D)
     Route: 048
     Dates: start: 20090710
  3. DOXORUBICIN HYDROCHLORIDE [Suspect]
     Dates: start: 20121231
  4. CYCLOPHOSPHAMIDE [Suspect]
     Indication: BREAST CANCER
     Dates: start: 20121231
  5. LAMOTRIGINE [Concomitant]
  6. AMPHETAMINE, DEXTROAMPHETAMINE MIXED SALTS [Concomitant]
  7. CITALOPRAM [Concomitant]

REACTIONS (4)
  - Breast cancer female [None]
  - Bone pain [None]
  - Nausea [None]
  - White blood cell count abnormal [None]
